FAERS Safety Report 9824236 (Version 2)
Quarter: 2014Q1

REPORT INFORMATION
  Report Type: Spontaneous
  Country: US (occurrence: US)
  Receive Date: 20140116
  Receipt Date: 20140116
  Transmission Date: 20141002
  Serious: No
  Sender: FDA-Public Use
  Company Number: US-GILEAD-2011-0037215

PATIENT
  Age: 55 Year
  Sex: Female

DRUGS (8)
  1. LETAIRIS [Suspect]
     Indication: PULMONARY HYPERTENSION
     Route: 048
     Dates: start: 20110209
  2. LETAIRIS [Suspect]
     Indication: PULMONARY SARCOIDOSIS
  3. ADVAIR [Concomitant]
  4. ALBUTEROL MDI [Concomitant]
  5. PREDNISONE [Concomitant]
  6. CALCIUM AND VITAMIN D [Concomitant]
  7. MVI [Concomitant]
  8. OMEGA 3 [Concomitant]

REACTIONS (3)
  - Blood alkaline phosphatase increased [Not Recovered/Not Resolved]
  - Asthenia [Not Recovered/Not Resolved]
  - Nausea [Not Recovered/Not Resolved]
